FAERS Safety Report 8577326-3 (Version None)
Quarter: 2012Q3

REPORT INFORMATION
  Report Type: 
  Country: None (occurrence: None)
  Receive Date: 20120807
  Receipt Date: 20120730
  Transmission Date: 20120928
  Serious: Yes (Hospitalization, Disabling, Other)
  Sender: FDA-Public Use
  Company Number: US-009507513-1203USA03295

PATIENT

DRUGS (5)
  1. POTASSIUM (UNSPECIFIED) [Concomitant]
     Dates: start: 20050801
  2. FOSAMAX [Suspect]
     Indication: OSTEOPOROSIS
     Dosage: 10 MG, UNK
     Route: 048
     Dates: start: 20010109
  3. FOSAMAX [Suspect]
     Dosage: 70 MG, QW
     Route: 048
     Dates: start: 20010214, end: 20100831
  4. FOSAMAX [Suspect]
     Dosage: 70 MG, QW
     Route: 048
     Dates: start: 20080325
  5. STUDY DRUG (UNSPECIFIED) [Suspect]

REACTIONS (21)
  - STRESS FRACTURE [None]
  - ANAEMIA POSTOPERATIVE [None]
  - CARDIOVASCULAR DISORDER [None]
  - POLYARTHRITIS [None]
  - BREAST CANCER [None]
  - ELECTROCARDIOGRAM ABNORMAL [None]
  - HYPERTENSION [None]
  - ADVERSE EVENT [None]
  - PROCEDURAL VOMITING [None]
  - GOUT [None]
  - OSTEOPOROSIS [None]
  - HIP FRACTURE [None]
  - FEMUR FRACTURE [None]
  - PERIODONTITIS [None]
  - SLEEP DISORDER [None]
  - LOW TURNOVER OSTEOPATHY [None]
  - PROCEDURAL NAUSEA [None]
  - OSTEOPENIA [None]
  - ELECTROLYTE IMBALANCE [None]
  - BREAST DISORDER [None]
  - ABDOMINAL DISCOMFORT [None]
